FAERS Safety Report 4443253-6 (Version None)
Quarter: 2004Q3

REPORT INFORMATION
  Report Type: 
  Country: None (occurrence: None)
  Receive Date: 20040728
  Receipt Date: 20040512
  Transmission Date: 20050211
  Serious: No
  Sender: FDA-Public Use
  Company Number: USA040567426

PATIENT
  Age: 45 Year
  Sex: Female

DRUGS (1)
  1. STRATTERA [Suspect]
     Dosage: 180 MG

REACTIONS (1)
  - PRESCRIBED OVERDOSE [None]
